FAERS Safety Report 16238268 (Version 1)
Quarter: 2019Q2

REPORT INFORMATION
  Report Type: Spontaneous
  Country: US (occurrence: US)
  Receive Date: 20190425
  Receipt Date: 20190425
  Transmission Date: 20190711
  Serious: No
  Sender: FDA-Public Use
  Company Number: US-PFIZER INC-2017250650

PATIENT
  Age: 65 Year
  Sex: Female

DRUGS (6)
  1. BACITRACIN ZINC/HYDROCORTISONE/NEOMYCIN SULFATE/POLYMYXIN B SULFATE [Suspect]
     Active Substance: BACITRACIN ZINC\HYDROCORTISONE\NEOMYCIN SULFATE\POLYMYXIN B SULFATE
  2. ULTRAM [Suspect]
     Active Substance: TRAMADOL HYDROCHLORIDE
     Dosage: UNK
  3. FLUTICASONE. [Suspect]
     Active Substance: FLUTICASONE
     Dosage: UNK
  4. LACTOSE [Suspect]
     Active Substance: LACTOSE
  5. LANOLIN. [Suspect]
     Active Substance: LANOLIN
     Dosage: UNK
  6. TRAMADOL HCL [Suspect]
     Active Substance: TRAMADOL HYDROCHLORIDE
     Dosage: UNK

REACTIONS (1)
  - Drug hypersensitivity [Unknown]
